FAERS Safety Report 16757708 (Version 2)
Quarter: 2019Q3

REPORT INFORMATION
  Report Type: Spontaneous
  Country: JP (occurrence: JP)
  Receive Date: 20190830
  Receipt Date: 20190903
  Transmission Date: 20191005
  Serious: No
  Sender: FDA-Public Use
  Company Number: JP-ROCHE-2387119

PATIENT
  Age: 83 Year
  Sex: Female

DRUGS (1)
  1. ACTEMRA [Suspect]
     Active Substance: TOCILIZUMAB
     Indication: CASTLEMAN^S DISEASE
     Route: 058
     Dates: start: 20190705, end: 20190802

REACTIONS (4)
  - Off label use [Unknown]
  - Platelet count decreased [Recovered/Resolved]
  - Complement factor decreased [Recovered/Resolved]
  - Intentional product use issue [Unknown]

NARRATIVE: CASE EVENT DATE: 20190802
